FAERS Safety Report 24625847 (Version 1)
Quarter: 2024Q4

REPORT INFORMATION
  Report Type: Spontaneous
  Country: US (occurrence: US)
  Receive Date: 20241115
  Receipt Date: 20241115
  Transmission Date: 20250115
  Serious: No
  Sender: ANI
  Company Number: US-ANIPHARMA-2024-US-051604

PATIENT
  Age: 72 Year
  Sex: Female

DRUGS (27)
  1. CORTICOTROPIN [Suspect]
     Active Substance: CORTICOTROPIN
     Indication: Dermatomyositis
     Dosage: 0.5 MILLILITRE(S) - ML
     Route: 058
  2. GABAPENTIN [Concomitant]
     Active Substance: GABAPENTIN
  3. SUPER B [Concomitant]
  4. HYALURONIC ACID [Concomitant]
     Active Substance: HYALURONIC ACID
  5. EZETIMIBE [Concomitant]
     Active Substance: EZETIMIBE
  6. CYCLOBENZAPRINE [Concomitant]
     Active Substance: CYCLOBENZAPRINE
  7. COENZYME Q10 [Concomitant]
     Active Substance: DIETARY SUPPLEMENT\UBIDECARENONE
  8. VITAMINS [Concomitant]
     Active Substance: VITAMINS
  9. PROLIA [Concomitant]
     Active Substance: DENOSUMAB
  10. TRAZODONE HCL [Concomitant]
     Active Substance: TRAZODONE HYDROCHLORIDE
  11. METHOTREXATE SODIUM [Concomitant]
     Active Substance: METHOTREXATE SODIUM
  12. SAPHNELO [Concomitant]
     Active Substance: ANIFROLUMAB-FNIA
  13. CELEBREX [Concomitant]
     Active Substance: CELECOXIB
  14. IMMUNE GLOBULIN [Concomitant]
  15. MONTELUKAST SODIUM [Concomitant]
     Active Substance: MONTELUKAST SODIUM
  16. FARXIGA [Concomitant]
     Active Substance: DAPAGLIFLOZIN PROPANEDIOL
  17. POTASSIUM [Concomitant]
     Active Substance: POTASSIUM
  18. GNP VITAMIN D MAXIMUM STR [Concomitant]
  19. PLAVIX [Concomitant]
     Active Substance: CLOPIDOGREL BISULFATE
  20. PANTOPRAZOLE SODIUM [Concomitant]
     Active Substance: PANTOPRAZOLE SODIUM
  21. KRILL OIL [Concomitant]
     Active Substance: DIETARY SUPPLEMENT\KRILL OIL
  22. OMEGA-3 ACIDS [Concomitant]
     Active Substance: OMEGA-3 FATTY ACIDS
  23. ASPIRIN CHILDREN^S [Concomitant]
  24. MEDICAL FOOD [Concomitant]
     Active Substance: MEDICAL FOOD
  25. METOPROLOL TARTRATE [Concomitant]
     Active Substance: METOPROLOL TARTRATE
  26. FOLIC ACID [Concomitant]
     Active Substance: FOLIC ACID
  27. NITROGLYCERIN CR [Concomitant]

REACTIONS (2)
  - Injection site erythema [Recovered/Resolved]
  - Injection site haemorrhage [Unknown]
